FAERS Safety Report 13048005 (Version 1)
Quarter: 2016Q4

REPORT INFORMATION
  Report Type: Spontaneous
  Country: US (occurrence: US)
  Receive Date: 20161220
  Receipt Date: 20161220
  Transmission Date: 20170207
  Serious: No
  Sender: FDA-Public Use
  Company Number: None

PATIENT
  Age: 59 Year
  Sex: Female

DRUGS (6)
  1. SIMVASTATIN. [Concomitant]
     Active Substance: SIMVASTATIN
  2. GILENYA [Suspect]
     Active Substance: FINGOLIMOD HYDROCHLORIDE
     Indication: MULTIPLE SCLEROSIS
     Route: 049
     Dates: start: 20160820
  3. BACLOFEN. [Concomitant]
     Active Substance: BACLOFEN
  4. CENTRUM [Concomitant]
     Active Substance: VITAMINS
  5. ATENOLOL. [Concomitant]
     Active Substance: ATENOLOL
  6. SYNTHROID [Concomitant]
     Active Substance: LEVOTHYROXINE SODIUM

REACTIONS (2)
  - Drug dose omission [None]
  - Pneumonia [None]
